FAERS Safety Report 4266861-4 (Version None)
Quarter: 2004Q1

REPORT INFORMATION
  Report Type: 
  Country: None (occurrence: None)
  Receive Date: 20040108
  Receipt Date: 20031117
  Transmission Date: 20041129
  Serious: Yes (Hospitalization)
  Sender: FDA-Public Use
  Company Number: WAES 0311USA02036

PATIENT
  Age: 45 Year
  Sex: Male

DRUGS (14)
  1. [THERAPY UNSPECIFIED] [Concomitant]
     Dates: start: 20020108, end: 20031019
  2. [THERAPY UNSPECIFIED] [Concomitant]
     Dates: start: 20030926, end: 20031019
  3. AMBROXOL HYDROCHLORIDE [Concomitant]
     Dates: start: 20010109, end: 20031019
  4. AZULENE SULFONATE SODIUM AND LEVOGLUTAMIDE [Concomitant]
     Dates: start: 20030926, end: 20031019
  5. BECLOMETHASONE DIPROPIONATE [Concomitant]
     Dates: start: 20030922, end: 20031019
  6. BETAMETHASONE AND DEXCHLORPHENIRAMINE MALEATE [Concomitant]
     Dates: start: 20030926, end: 20031019
  7. LYSOZYME HYDROCHLORIDE [Concomitant]
     Dates: start: 20030926, end: 20031019
  8. SINGULAIR [Suspect]
     Route: 048
     Dates: start: 20020531, end: 20031019
  9. SINGULAIR [Suspect]
     Route: 048
     Dates: start: 20031114
  10. SERRAPEPTASE [Concomitant]
     Dates: start: 20010109, end: 20031019
  11. SUPLATAST TOSYLATE [Concomitant]
     Dates: start: 20030926, end: 20031019
  12. THEOPHYLLINE [Concomitant]
     Dates: start: 20010109, end: 20031019
  13. TULOBUTEROL [Concomitant]
     Dates: start: 20010307, end: 20031019
  14. ZAFIRLUKAST [Concomitant]
     Dates: start: 20010601, end: 20020621

REACTIONS (3)
  - HEPATITIS [None]
  - MALAISE [None]
  - PYREXIA [None]
